FAERS Safety Report 7031147-1 (Version None)
Quarter: 2010Q4

REPORT INFORMATION
  Report Type: 
  Country: None (occurrence: None)
  Receive Date: 20101001
  Receipt Date: 20100920
  Transmission Date: 20110411
  Serious: Yes (Other)
  Sender: FDA-Public Use
  Company Number: US-1183511

PATIENT
  Age: 64 Year
  Sex: Female
  Weight: 81 kg

DRUGS (3)
  1. NEVANAC [Suspect]
     Indication: CATARACT OPERATION
     Dosage: OPHTHALMIC
     Route: 047
     Dates: start: 20100801
  2. AROMASIN [Suspect]
     Indication: BREAST CANCER
     Dosage: 25 MG QD ORAL
     Route: 048
  3. LEVOTHYROXINE [Concomitant]

REACTIONS (3)
  - CATARACT [None]
  - INTRAOCULAR PRESSURE INCREASED [None]
  - PLATELET COUNT DECREASED [None]
